FAERS Safety Report 8550607-5 (Version None)
Quarter: 2012Q3

REPORT INFORMATION
  Report Type: 
  Country: None (occurrence: None)
  Receive Date: 20120730
  Receipt Date: 20110624
  Transmission Date: 20120928
  Serious: No
  Sender: FDA-Public Use
  Company Number: US-ALLERGAN-1108579US

PATIENT
  Age: 72 Year
  Sex: Female

DRUGS (2)
  1. LUMIGAN [Suspect]
     Indication: INTRAOCULAR PRESSURE INCREASED
     Dosage: 2 GTT, QHS
     Dates: start: 20110623
  2. LUMIGAN [Suspect]
     Dosage: 2 GTT, QHS
     Route: 047

REACTIONS (3)
  - NAUSEA [None]
  - VERTIGO [None]
  - HEADACHE [None]
